FAERS Safety Report 19924396 (Version 4)
Quarter: 2022Q3

REPORT INFORMATION
  Report Type: Report from Study
  Country: CN (occurrence: None)
  Receive Date: 20211006
  Receipt Date: 20220721
  Transmission Date: 20221027
  Serious: Yes (Hospitalization)
  Sender: FDA-Public Use
  Company Number: CN-ROCHE-2926568

PATIENT
  Age: 44 Year
  Sex: Male
  Weight: 59 kg

DRUGS (8)
  1. ATEZOLIZUMAB [Suspect]
     Active Substance: ATEZOLIZUMAB
     Indication: Hepatocellular carcinoma
     Dosage: MOST RECENT DOSE (1200 MG) OF STUDY DRUG PRIOR TO AE: 28/JUL/2021?MOST RECENT DOSE (1200 MG) OF STUD
     Route: 041
     Dates: start: 20201230
  2. BEVACIZUMAB [Suspect]
     Active Substance: BEVACIZUMAB
     Indication: Hepatocellular carcinoma
     Dosage: MOST RECENT DOSE (960 MG) OF STUDY DRUG PRIOR TO AE: 28/JUL/2021?MOST RECENT DOSE (960 MG) OF STUDY
     Route: 041
     Dates: start: 20201230
  3. LAMIVUDINE [Concomitant]
     Active Substance: LAMIVUDINE
     Indication: Chronic hepatitis B
     Dates: start: 2008
  4. ADEFOVIR DIPIVOXIL [Concomitant]
     Active Substance: ADEFOVIR DIPIVOXIL
     Indication: Chronic hepatitis B
     Dates: start: 2008
  5. ESZOPICLONE [Concomitant]
     Active Substance: ESZOPICLONE
     Indication: Insomnia
     Dates: start: 20210131, end: 20210826
  6. PHOSPHOLIPID [Concomitant]
     Active Substance: PHOSPHOLIPID
     Indication: Chronic hepatitis B
     Dates: start: 20210127
  7. BUDESONIDE [Concomitant]
     Active Substance: BUDESONIDE
     Dates: start: 20210605, end: 20210707
  8. AMOXICILLIN\CLAVULANATE POTASSIUM [Concomitant]
     Active Substance: AMOXICILLIN\CLAVULANATE POTASSIUM
     Indication: Gingivitis
     Dates: start: 20210322

REACTIONS (1)
  - Insomnia [Recovered/Resolved]

NARRATIVE: CASE EVENT DATE: 20210801
